FAERS Safety Report 10154720 (Version 1)
Quarter: 2014Q2

REPORT INFORMATION
  Report Type: Spontaneous
  Country: US (occurrence: None)
  Receive Date: 20140505
  Receipt Date: 20140505
  Transmission Date: 20141212
  Serious: No
  Sender: FDA-Public Use
  Company Number: None

PATIENT
  Sex: Male
  Weight: 40.82 kg

DRUGS (1)
  1. DEXMETHYLPHENIDATE ER [Suspect]
     Dosage: 1 CAPSULE DAILY ORAL

REACTIONS (2)
  - Drug ineffective [None]
  - Product substitution issue [None]
